FAERS Safety Report 25678040 (Version 1)
Quarter: 2025Q3

REPORT INFORMATION
  Report Type: Spontaneous
  Country: CA (occurrence: CA)
  Receive Date: 20250813
  Receipt Date: 20250813
  Transmission Date: 20251020
  Serious: Yes (Life-Threatening, Hospitalization, Other)
  Sender: SERVIER
  Company Number: None

PATIENT

DRUGS (1)
  1. ONCASPAR [Suspect]
     Active Substance: PEGASPARGASE
     Indication: T-cell type acute leukaemia
     Route: 042

REACTIONS (5)
  - Abdominal pain [Recovering/Resolving]
  - Decreased appetite [Recovering/Resolving]
  - Fatigue [Recovering/Resolving]
  - Pancreatitis necrotising [Recovering/Resolving]
  - Vomiting [Recovering/Resolving]
